FAERS Safety Report 19980879 (Version 1)
Quarter: 2021Q4

REPORT INFORMATION
  Report Type: Spontaneous
  Country: US (occurrence: US)
  Receive Date: 20211022
  Receipt Date: 20211022
  Transmission Date: 20220303
  Serious: Yes (Other)
  Sender: FDA-Public Use
  Company Number: ALC2021US005747

PATIENT
  Age: 68 Year
  Sex: Female

DRUGS (11)
  1. BSS [Suspect]
     Active Substance: CALCIUM CHLORIDE\MAGNESIUM CHLORIDE\POTASSIUM CHLORIDE\SODIUM ACETATE\SODIUM CHLORIDE\SODIUM CITRATE
     Indication: Product used for unknown indication
     Route: 065
  2. POVIDONE-IODINE [Suspect]
     Active Substance: POVIDONE-IODINE
     Indication: Surgery
     Dosage: UNK
     Route: 061
  3. POVIDONE-IODINE [Suspect]
     Active Substance: POVIDONE-IODINE
     Dosage: UNK
     Route: 003
  4. OFLOXACIN [Suspect]
     Active Substance: OFLOXACIN
     Indication: Preoperative care
     Dosage: UNK, QID, 3 DAYS BEFORE SURGERY
     Route: 065
  5. OFLOXACIN [Suspect]
     Active Substance: OFLOXACIN
     Indication: Postoperative care
     Dosage: QID 2 WEEKS
     Route: 065
  6. LIDOCAINE [Suspect]
     Active Substance: LIDOCAINE
     Indication: Preoperative care
     Route: 065
  7. LIDOCAINE [Suspect]
     Active Substance: LIDOCAINE
     Indication: Preoperative care
     Route: 065
  8. VANCOMYCIN [Suspect]
     Active Substance: VANCOMYCIN
     Indication: Product used for unknown indication
     Dosage: 0.2 UNK OF 50MG/ML ADDED TO BSS BAG
     Route: 065
  9. ILEVRO [Suspect]
     Active Substance: NEPAFENAC
     Indication: Postoperative care
     Dosage: UNK UNK, QD FOR 4 WEEKS
     Route: 065
  10. DUREZOL [Suspect]
     Active Substance: DIFLUPREDNATE
     Indication: Postoperative care
     Dosage: UNK UNK, BID FOR 2 WEEKS
     Route: 065
  11. DUREZOL [Suspect]
     Active Substance: DIFLUPREDNATE
     Dosage: UNK UNK, QD FOR 2 WEEKS
     Route: 065

REACTIONS (2)
  - Toxic anterior segment syndrome [Recovering/Resolving]
  - Aqueous fibrin [Recovering/Resolving]

NARRATIVE: CASE EVENT DATE: 20210930
